FAERS Safety Report 4826428-3 (Version None)
Quarter: 2005Q4

REPORT INFORMATION
  Report Type: 
  Country: None (occurrence: None)
  Receive Date: 20051111
  Receipt Date: 20040527
  Transmission Date: 20060501
  Serious: Yes (Death)
  Sender: FDA-Public Use
  Company Number: IT-ABBOTT-04P-083-0262392-01

PATIENT
  Sex: Male
  Weight: 80 kg

DRUGS (10)
  1. HUMIRA [Suspect]
     Indication: RHEUMATOID ARTHRITIS
     Route: 058
     Dates: start: 20010110, end: 20040218
  2. SPIRONOLACTONE [Concomitant]
     Indication: CARDIAC FAILURE
     Route: 048
     Dates: start: 20040325, end: 20040526
  3. FUROSEMIDE [Concomitant]
     Indication: CARDIAC FAILURE
     Route: 048
     Dates: start: 20040325, end: 20040526
  4. PANTOPRAZOLE [Concomitant]
     Indication: PROPHYLAXIS AGAINST GASTROINTESTINAL ULCER
     Dates: start: 20040325, end: 20040526
  5. GLYCERYL TRINITRATE [Concomitant]
     Indication: MYOCARDIAL INFARCTION
     Route: 061
     Dates: start: 20040325, end: 20040526
  6. ASPIRIN [Concomitant]
     Indication: MYOCARDIAL INFARCTION
     Route: 048
     Dates: start: 20040325, end: 20040526
  7. ACECLOFENAC [Concomitant]
     Indication: RHEUMATOID ARTHRITIS
     Route: 048
     Dates: start: 20040325, end: 20040526
  8. PENTOXIFYLLINE [Concomitant]
     Indication: ARTERIOSCLEROSIS
     Route: 048
     Dates: start: 20040325, end: 20040526
  9. BROTIZOLAM [Concomitant]
     Indication: RHEUMATOID ARTHRITIS
     Route: 048
     Dates: start: 20040325, end: 20040526
  10. PREDNISONE [Concomitant]
     Indication: RHEUMATOID ARTHRITIS
     Route: 048
     Dates: start: 20040325, end: 20040526

REACTIONS (1)
  - DEATH [None]
